FAERS Safety Report 8373539-4 (Version None)
Quarter: 2012Q2

REPORT INFORMATION
  Report Type: 
  Country: None (occurrence: None)
  Receive Date: 20120521
  Receipt Date: 20120511
  Transmission Date: 20120825
  Serious: Yes (Other)
  Sender: FDA-Public Use
  Company Number: US-US-EMD SERONO, INC.-7109807

PATIENT
  Sex: Female
  Weight: 69 kg

DRUGS (8)
  1. HYDROCODONE BITARTRATE + ACETAMINOPHEN [Concomitant]
     Indication: PAIN IN EXTREMITY
  2. HYDROCODONE BITARTRATE + ACETAMINOPHEN [Concomitant]
     Indication: ARTHRALGIA
  3. REBIF [Suspect]
     Indication: RELAPSING-REMITTING MULTIPLE SCLEROSIS
     Route: 058
     Dates: start: 20110628
  4. MOTRIN [Concomitant]
     Indication: HEADACHE
  5. MOTRIN [Concomitant]
     Indication: BACK PAIN
  6. MOTRIN [Concomitant]
     Indication: PAIN IN EXTREMITY
  7. LEXAPRO [Concomitant]
     Indication: DEPRESSION
     Dates: start: 20120401
  8. PAXIL [Concomitant]
     Indication: PRODUCT USED FOR UNKNOWN INDICATION

REACTIONS (2)
  - PSORIASIS [None]
  - INFLUENZA LIKE ILLNESS [None]
